FAERS Safety Report 8848690 (Version 1)
Quarter: 2012Q4

REPORT INFORMATION
  Report Type: Spontaneous
  Country: BR (occurrence: None)
  Receive Date: 20121015
  Receipt Date: 20121015
  Transmission Date: 20130627
  Serious: Yes (Other)
  Sender: FDA-Public Use
  Company Number: VAL_00907_2012

PATIENT
  Age: 37 Year
  Sex: Female

DRUGS (1)
  1. METHERGINE [Suspect]
     Indication: PRODUCT USED FOR UNKNOWN INDICATION
     Dosage: 1 df 1x/8 hours Oral
     Route: 048

REACTIONS (1)
  - Haemorrhage [None]
